FAERS Safety Report 4691383-6 (Version None)
Quarter: 2005Q2

REPORT INFORMATION
  Report Type: 
  Country: None (occurrence: None)
  Receive Date: 20050615
  Receipt Date: 20050603
  Transmission Date: 20051028
  Serious: Yes (Hospitalization, Other)
  Sender: FDA-Public Use
  Company Number: KII-2005-0016883

PATIENT
  Age: 50 Year
  Sex: Female

DRUGS (3)
  1. OXYCONTIN [Suspect]
     Indication: PAIN
     Dosage: ORAL
     Route: 048
  2. COCAINE (COCAINE) [Suspect]
  3. BENZODIAZEPINE DERIVATIVES [Suspect]

REACTIONS (10)
  - AGITATION [None]
  - ALANINE AMINOTRANSFERASE INCREASED [None]
  - ALKALOSIS [None]
  - ASPARTATE AMINOTRANSFERASE INCREASED [None]
  - BLOOD PRESSURE SYSTOLIC INCREASED [None]
  - DRUG SCREEN POSITIVE [None]
  - OVERDOSE [None]
  - PCO2 INCREASED [None]
  - PO2 INCREASED [None]
  - RESPIRATORY DEPRESSION [None]
